FAERS Safety Report 25181846 (Version 2)
Quarter: 2025Q4

REPORT INFORMATION
  Report Type: Spontaneous
  Country: US (occurrence: US)
  Receive Date: 20250410
  Receipt Date: 20251015
  Transmission Date: 20260118
  Serious: Yes (Other)
  Sender: BRISTOL-MYERS SQUIBB COMPANY
  Company Number: US-BRISTOL-MYERS SQUIBB COMPANY-2025-052651

PATIENT
  Age: 38 Year
  Sex: Female

DRUGS (2)
  1. ZEPOSIA [Suspect]
     Active Substance: OZANIMOD HYDROCHLORIDE
     Indication: Multiple sclerosis
     Dates: start: 202406
  2. ZEPOSIA [Suspect]
     Active Substance: OZANIMOD HYDROCHLORIDE

REACTIONS (5)
  - Pain [Unknown]
  - Affective disorder [Unknown]
  - Depressed level of consciousness [Unknown]
  - Disturbance in attention [Unknown]
  - Fatigue [Unknown]

NARRATIVE: CASE EVENT DATE: 20250301
